FAERS Safety Report 21180073 (Version 1)
Quarter: 2022Q3

REPORT INFORMATION
  Report Type: Spontaneous
  Country: US (occurrence: None)
  Receive Date: 20220805
  Receipt Date: 20220805
  Transmission Date: 20221027
  Serious: Yes (Hospitalization)
  Sender: FDA-Public Use
  Company Number: None

PATIENT
  Sex: Male

DRUGS (1)
  1. CREON [Suspect]
     Active Substance: PANCRELIPASE AMYLASE\PANCRELIPASE LIPASE\PANCRELIPASE PROTEASE
     Indication: Cystic fibrosis
     Dosage: OTHER QUANTITY : 12000-38000 UNIT;?FREQUENCY : 3 TIMES A DAY;?TAKE 4 CAPSULES BY MOUTH THREE TIMES D
     Route: 048
     Dates: start: 20220419

REACTIONS (1)
  - Lung disorder [None]
